FAERS Safety Report 9818350 (Version 1)
Quarter: 2014Q1

REPORT INFORMATION
  Report Type: Spontaneous
  Country: US (occurrence: US)
  Receive Date: 20140115
  Receipt Date: 20140115
  Transmission Date: 20141002
  Serious: No
  Sender: FDA-Public Use
  Company Number: US-PFIZER INC-2014006773

PATIENT
  Age: 80 Year
  Sex: Female

DRUGS (12)
  1. NEURONTIN [Suspect]
     Dosage: UNK
  2. AMITRIPTYLINE [Suspect]
     Dosage: UNK
  3. PARAFON FORTE [Suspect]
     Dosage: UNK
  4. PANMIST DM [Suspect]
     Dosage: UNK
  5. DARVON [Suspect]
     Dosage: UNK
  6. LIQUIBID [Suspect]
     Dosage: UNK
  7. PLAQUENIL [Suspect]
     Dosage: UNK
  8. MELOXICAM [Suspect]
     Dosage: UNK
  9. METHOCARBAMOL [Suspect]
     Dosage: UNK
  10. NABUMETONE [Suspect]
     Dosage: UNK
  11. NORTRIPTYLINE [Suspect]
     Dosage: UNK
  12. PROCAINE [Suspect]
     Dosage: UNK

REACTIONS (1)
  - Drug hypersensitivity [Unknown]
